FAERS Safety Report 24254456 (Version 3)
Quarter: 2024Q4

REPORT INFORMATION
  Report Type: Report from Study
  Country: US (occurrence: US)
  Receive Date: 20240827
  Receipt Date: 20241007
  Transmission Date: 20250115
  Serious: Yes (Other)
  Sender: ABBVIE
  Company Number: US-ABBVIE-5893848

PATIENT
  Sex: Female

DRUGS (1)
  1. VENCLEXTA [Suspect]
     Active Substance: VENETOCLAX
     Indication: Chronic lymphocytic leukaemia (in remission)
     Dosage: STOP DATE :2024
     Route: 048
     Dates: start: 202406

REACTIONS (6)
  - Haemolytic anaemia [Unknown]
  - Gastrointestinal disorder [Unknown]
  - Dysphonia [Unknown]
  - Nausea [Unknown]
  - Diarrhoea [Unknown]
  - Frustration tolerance decreased [Unknown]

NARRATIVE: CASE EVENT DATE: 20240101
